FAERS Safety Report 19787573 (Version 2)
Quarter: 2021Q4

REPORT INFORMATION
  Report Type: Spontaneous
  Country: DE (occurrence: DE)
  Receive Date: 20210903
  Receipt Date: 20211116
  Transmission Date: 20220303
  Serious: Yes (Hospitalization)
  Sender: FDA-Public Use
  Company Number: DE-002147023-NVSC2021DE150090

PATIENT

DRUGS (2)
  1. RUXOLITINIB [Suspect]
     Active Substance: RUXOLITINIB
     Indication: Polycythaemia vera
     Dosage: 15 MG, BID (2X DAILY)JAKAVI FOR ALMOST SIX YEARS (PACKAGE SIZE OF 56)
     Route: 065
     Dates: start: 201503, end: 2021
  2. RUXOLITINIB [Suspect]
     Active Substance: RUXOLITINIB
     Dosage: UNK (2X 10 MG)
     Route: 065
     Dates: start: 20211007

REACTIONS (6)
  - Cystitis [Recovering/Resolving]
  - Chronic sinusitis [Recovering/Resolving]
  - Natural killer cell count decreased [Unknown]
  - T-lymphocyte count decreased [Unknown]
  - Lymphopenia [Unknown]
  - Pneumonia [Recovered/Resolved]

NARRATIVE: CASE EVENT DATE: 20180101
